FAERS Safety Report 13365775 (Version 1)
Quarter: 2017Q1

REPORT INFORMATION
  Report Type: Spontaneous
  Country: US (occurrence: US)
  Receive Date: 20170323
  Receipt Date: 20170323
  Transmission Date: 20170429
  Serious: Yes (Other)
  Sender: FDA-Public Use
  Company Number: US-WARNER CHILCOTT-2016-002277

PATIENT
  Age: 83 Year
  Sex: Female
  Weight: 68.03 kg

DRUGS (7)
  1. VAGIFEN [Suspect]
     Active Substance: ESTRADIOL
     Dosage: 10 MG, UNKNOWN
     Route: 065
  2. BENADRYL [Concomitant]
     Active Substance: DIPHENHYDRAMINE HYDROCHLORIDE
     Dosage: UNK, BEDTIME
     Route: 065
  3. MELATONIN [Concomitant]
     Active Substance: MELATONIN
     Indication: SLEEP DISORDER
     Dosage: UNK, UNKNOWN
  4. ESTRACE [Suspect]
     Active Substance: ESTRADIOL
     Dosage: UNKNOWN
     Route: 067
  5. VALSARTAN. [Concomitant]
     Active Substance: VALSARTAN
     Dosage: 80 MG, BEDTIME
  6. ZYRTEC [Concomitant]
     Active Substance: CETIRIZINE HYDROCHLORIDE
     Indication: HYPERSENSITIVITY
     Dosage: 10 MG IN THE AM
  7. SYNTHROID [Concomitant]
     Active Substance: LEVOTHYROXINE SODIUM
     Dosage: 1 TAB, QD

REACTIONS (3)
  - Carcinoid tumour of the stomach [Unknown]
  - Urinary tract infection [Recovered/Resolved]
  - Vulvovaginal burning sensation [Unknown]

NARRATIVE: CASE EVENT DATE: 20140112
